FAERS Safety Report 13358907 (Version 1)
Quarter: 2017Q1

REPORT INFORMATION
  Report Type: Spontaneous
  Country: US (occurrence: US)
  Receive Date: 20170322
  Receipt Date: 20170322
  Transmission Date: 20170429
  Serious: No
  Sender: FDA-Public Use
  Company Number: US-PFIZER INC-3199094

PATIENT
  Age: 45 Year
  Sex: Male
  Weight: 135 kg

DRUGS (2)
  1. CEFAZOLIN [Suspect]
     Active Substance: CEFAZOLIN
     Indication: OTITIS MEDIA ACUTE
     Dosage: 1 G, ONCE
     Route: 030
     Dates: start: 20160302, end: 20160302
  2. LIDOCAINE. [Suspect]
     Active Substance: LIDOCAINE
     Indication: MEDICATION DILUTION
     Dosage: ONCE
     Route: 030
     Dates: start: 20160302, end: 20160302

REACTIONS (5)
  - Product deposit [Recovered/Resolved]
  - No adverse event [Unknown]
  - Drug chemical incompatibility [Recovered/Resolved]
  - Expired product administered [Recovered/Resolved]
  - Wrong drug administered [Recovered/Resolved]

NARRATIVE: CASE EVENT DATE: 20160302
